FAERS Safety Report 23659712 (Version 1)
Quarter: 2024Q1

REPORT INFORMATION
  Report Type: Spontaneous
  Country: JP (occurrence: JP)
  Receive Date: 20240321
  Receipt Date: 20240321
  Transmission Date: 20240410
  Serious: Yes (Other)
  Sender: FDA-Public Use
  Company Number: JP-ABBVIE-5688621

PATIENT
  Age: 43 Year
  Sex: Female

DRUGS (1)
  1. ASENAPINE MALEATE [Suspect]
     Active Substance: ASENAPINE MALEATE
     Indication: Product used for unknown indication
     Dosage: 20 MG, ONCE DAILY BEFORE BEDTIME
     Route: 060

REACTIONS (3)
  - Loss of consciousness [Recovered/Resolved]
  - Off label use [Unknown]
  - Prescribed overdose [Unknown]
